FAERS Safety Report 5257074-8 (Version None)
Quarter: 2007Q1

REPORT INFORMATION
  Report Type: 
  Country: None (occurrence: None)
  Receive Date: 20070305
  Receipt Date: 20070305
  Transmission Date: 20070707
  Serious: No
  Sender: FDA-Public Use
  Company Number: None

PATIENT
  Age: 33 Year
  Sex: Female
  Weight: 61.2356 kg

DRUGS (2)
  1. LEVOXYL [Suspect]
     Indication: CONGENITAL HYPOTHYROIDISM
     Dosage: 0,88 TUES AND SAT PO
     Route: 048
  2. LEVOXYL [Suspect]
     Dosage: 0.75 MON,WED,FRI,SUN PO
     Route: 048

REACTIONS (2)
  - HYPOTHYROIDISM [None]
  - PHARMACEUTICAL PRODUCT COMPLAINT [None]
